FAERS Safety Report 11909211 (Version 4)
Quarter: 2016Q1

REPORT INFORMATION
  Report Type: Spontaneous
  Country: US (occurrence: US)
  Receive Date: 20160112
  Receipt Date: 20160204
  Transmission Date: 20160526
  Serious: Yes (Hospitalization)
  Sender: FDA-Public Use
  Company Number: US-ROCHE-1692871

PATIENT
  Age: 41 Year
  Sex: Female

DRUGS (6)
  1. ZYFLO CR [Concomitant]
     Active Substance: ZILEUTON
     Indication: ASPIRIN-EXACERBATED RESPIRATORY DISEASE
  2. FLOVENT [Concomitant]
     Active Substance: FLUTICASONE PROPIONATE
     Indication: HAEMORRHAGE
     Route: 055
     Dates: start: 201511
  3. XOLAIR [Suspect]
     Active Substance: OMALIZUMAB
     Indication: ASTHMA
     Route: 058
     Dates: start: 20160108, end: 20160108
  4. SINGULAIR [Concomitant]
     Active Substance: MONTELUKAST SODIUM
     Indication: ASTHMA
     Route: 048
  5. ADVAIR HFA [Concomitant]
     Active Substance: FLUTICASONE PROPIONATE\SALMETEROL XINAFOATE
     Indication: ASTHMA
     Dosage: 1 PUFF, 500/50
     Route: 055
     Dates: start: 201512
  6. ZYFLO CR [Concomitant]
     Active Substance: ZILEUTON
     Indication: ASTHMA
     Route: 048

REACTIONS (1)
  - Anaphylactic reaction [Recovered/Resolved]

NARRATIVE: CASE EVENT DATE: 20160108
